FAERS Safety Report 20721113 (Version 1)
Quarter: 2022Q2

REPORT INFORMATION
  Report Type: Spontaneous
  Country: US (occurrence: None)
  Receive Date: 20220415
  Receipt Date: 20220415
  Transmission Date: 20220721
  Serious: Yes (Life-Threatening)
  Sender: FDA-Public Use
  Company Number: None

PATIENT
  Age: 64 Year
  Sex: Male
  Weight: 107.4 kg

DRUGS (1)
  1. MULTIHANCE [Suspect]
     Active Substance: GADOBENATE DIMEGLUMINE
     Indication: Contrast media deposition
     Dosage: OTHER FREQUENCY : ONCE;?
     Route: 042
     Dates: start: 20220414, end: 20220414

REACTIONS (3)
  - Dyspnoea [None]
  - Cardiac failure [None]
  - Cardiogenic shock [None]

NARRATIVE: CASE EVENT DATE: 20220414
